FAERS Safety Report 8218856-3 (Version None)
Quarter: 2012Q1

REPORT INFORMATION
  Report Type: 
  Country: None (occurrence: None)
  Receive Date: 20120319
  Receipt Date: 20120314
  Transmission Date: 20120608
  Serious: Yes (Other)
  Sender: FDA-Public Use
  Company Number: PHHY2012DE023085

PATIENT
  Sex: Female
  Weight: 63 kg

DRUGS (3)
  1. FASLODEX [Concomitant]
     Indication: BREAST CANCER METASTATIC
     Dosage: 500 MG, QD
     Route: 030
     Dates: start: 20100303
  2. HERCEPTIN [Concomitant]
     Indication: BREAST CANCER METASTATIC
     Dosage: 381.6 MG, EVERY 6 WEEKS
     Dates: start: 20090402
  3. ZOMETA [Suspect]
     Indication: BREAST CANCER METASTATIC
     Dosage: 4 MG, EVERY 4 WEEKS
     Route: 042
     Dates: start: 20090402, end: 20120125

REACTIONS (1)
  - OSTEONECROSIS OF JAW [None]
